FAERS Safety Report 20136890 (Version 1)
Quarter: 2021Q4

REPORT INFORMATION
  Report Type: Spontaneous
  Country: FR (occurrence: FR)
  Receive Date: 20211201
  Receipt Date: 20211201
  Transmission Date: 20220304
  Serious: Yes (Other)
  Sender: FDA-Public Use
  Company Number: FR-SA-2021SA334379

PATIENT
  Age: 72 Year
  Sex: Female

DRUGS (2)
  1. PREDNISONE [Suspect]
     Active Substance: PREDNISONE
     Indication: Giant cell arteritis
     Dosage: 1 DF, QD
     Dates: start: 20210825
  2. PREDNISONE [Suspect]
     Active Substance: PREDNISONE
     Indication: Polymyalgia rheumatica
     Dosage: 2 DF, QD

REACTIONS (19)
  - Polymyalgia rheumatica [Unknown]
  - Spinal fracture [Unknown]
  - Swelling face [Unknown]
  - Hypertrichosis [Unknown]
  - Vision blurred [Unknown]
  - Tremor [Unknown]
  - Sciatica [Unknown]
  - Erythema [Unknown]
  - Skin fragility [Unknown]
  - Swelling [Unknown]
  - Lipohypertrophy [Unknown]
  - Abdominal pain upper [Unknown]
  - Vasculitis [Unknown]
  - Unevaluable event [Unknown]
  - Weight increased [Unknown]
  - Osteoporosis [Unknown]
  - Oesophagitis [Unknown]
  - Limb discomfort [Unknown]
  - Tendonitis [Unknown]
